FAERS Safety Report 9813082 (Version 1)
Quarter: 2014Q1

REPORT INFORMATION
  Report Type: Spontaneous
  Country: US (occurrence: None)
  Receive Date: 20140110
  Receipt Date: 20140110
  Transmission Date: 20141002
  Serious: No
  Sender: FDA-Public Use
  Company Number: None

PATIENT
  Sex: Female
  Weight: 54.43 kg

DRUGS (2)
  1. PERPHENAZINE [Suspect]
     Dosage: 2 MORNING / 1 NIGHT
     Route: 048
     Dates: start: 1999
  2. KLONOPIN [Concomitant]

REACTIONS (1)
  - Lacrimation increased [None]
